FAERS Safety Report 14952060 (Version 1)
Quarter: 2018Q2

REPORT INFORMATION
  Report Type: Spontaneous
  Country: US (occurrence: US)
  Receive Date: 20180509
  Receipt Date: 20180509
  Transmission Date: 20180711
  Serious: Yes (Hospitalization)
  Sender: FDA-Public Use
  Company Number: None

PATIENT
  Age: 71 Year
  Sex: Male
  Weight: 95 kg

DRUGS (6)
  1. GLIMEPIRIDE. [Concomitant]
     Active Substance: GLIMEPIRIDE
  2. METFORMIN [Concomitant]
     Active Substance: METFORMIN HYDROCHLORIDE
  3. PRADAXA [Suspect]
     Active Substance: DABIGATRAN ETEXILATE MESYLATE
     Indication: ATRIAL FIBRILLATION
     Route: 048
  4. ATORVASTATIN10 MG [Concomitant]
  5. CARVEDILOL 6.25MG [Concomitant]
     Active Substance: CARVEDILOL
  6. AMINODARONE [Concomitant]

REACTIONS (2)
  - Headache [None]
  - Subdural haematoma [None]

NARRATIVE: CASE EVENT DATE: 20180505
